FAERS Safety Report 4464580-2 (Version None)
Quarter: 2004Q3

REPORT INFORMATION
  Report Type: 
  Country: None (occurrence: None)
  Receive Date: 20040929
  Receipt Date: 20040909
  Transmission Date: 20050211
  Serious: Yes (Death)
  Sender: FDA-Public Use
  Company Number: A0524027A

PATIENT
  Age: 66 Year
  Sex: Male

DRUGS (8)
  1. PAXIL [Suspect]
     Indication: DEPRESSION
     Dosage: 20 MG/PER DAY/ORAL
     Route: 048
     Dates: start: 20020220
  2. HYDROXYZINE HYDROCHLORIDE [Concomitant]
  3. ATORVASTATIN CALCIUM [Concomitant]
  4. ASPIRIN [Concomitant]
  5. METOPROLOL SUCCINATE [Concomitant]
  6. ESOMEPRAZOLE [Concomitant]
  7. CLOPIDOGREL BISULFATE [Concomitant]
  8. .. [Concomitant]

REACTIONS (7)
  - AGGRESSION [None]
  - COMPLETED SUICIDE [None]
  - GUN SHOT WOUND [None]
  - HEAD INJURY [None]
  - HOMICIDAL IDEATION [None]
  - PULSE ABSENT [None]
  - RESPIRATORY ARREST [None]
